FAERS Safety Report 4299977-7 (Version None)
Quarter: 2004Q1

REPORT INFORMATION
  Report Type: 
  Country: None (occurrence: None)
  Receive Date: 20040218
  Receipt Date: 20040203
  Transmission Date: 20041129
  Serious: Yes (Death, Hospitalization)
  Sender: FDA-Public Use
  Company Number: GBS040214376

PATIENT
  Sex: Male

DRUGS (1)
  1. PROZAC [Suspect]
     Dosage: UNK
     Route: 065
     Dates: start: 20020101

REACTIONS (6)
  - INTESTINAL PERFORATION [None]
  - LOSS OF CONSCIOUSNESS [None]
  - PNEUMONIA [None]
  - PROCEDURAL COMPLICATION [None]
  - STAPHYLOCOCCAL INFECTION [None]
  - TOXIC EPIDERMAL NECROLYSIS [None]
